FAERS Safety Report 4358126-7 (Version None)
Quarter: 2004Q2

REPORT INFORMATION
  Report Type: 
  Country: None (occurrence: None)
  Receive Date: 20040513
  Receipt Date: 20040513
  Transmission Date: 20050107
  Serious: Yes (Other)
  Sender: FDA-Public Use
  Company Number: None

PATIENT
  Sex: Female
  Weight: 89.3586 kg

DRUGS (1)
  1. LEVAQUIN [Suspect]
     Indication: CELLULITIS
     Dosage: 500 MCG DAILY ORAL
     Route: 048
     Dates: start: 20040423, end: 20040503

REACTIONS (7)
  - GENITAL PRURITUS FEMALE [None]
  - HEART RATE IRREGULAR [None]
  - RASH [None]
  - SKIN DISCOLOURATION [None]
  - SKIN LESION [None]
  - SKIN SWELLING [None]
  - VAGINAL SWELLING [None]
